FAERS Safety Report 7613754-8 (Version None)
Quarter: 2011Q3

REPORT INFORMATION
  Report Type: 
  Country: None (occurrence: None)
  Receive Date: 20110708
  Receipt Date: 20110630
  Transmission Date: 20111222
  Serious: Yes (Death, Hospitalization)
  Sender: FDA-Public Use
  Company Number: 2011071474

PATIENT
  Age: 72 Year
  Sex: Male

DRUGS (6)
  1. DIGOXIN [Concomitant]
  2. AMOXICILLIN [Concomitant]
  3. CODEINE PHOSPHATE AND ACETAMINOPHEN [Concomitant]
  4. SPIRIVA [Concomitant]
  5. DILTIAZEM [Concomitant]
  6. DALTEPARIN SODIUM [Suspect]
     Indication: LUNG NEOPLASM MALIGNANT
     Dosage: 75
     Dates: start: 20110316, end: 20110328

REACTIONS (7)
  - GENERAL PHYSICAL HEALTH DETERIORATION [None]
  - BLOOD UREA INCREASED [None]
  - BLOOD ALBUMIN DECREASED [None]
  - PROTEIN TOTAL DECREASED [None]
  - ALANINE AMINOTRANSFERASE INCREASED [None]
  - HAEMOGLOBIN DECREASED [None]
  - PNEUMONIA [None]
